FAERS Safety Report 5066295-9 (Version None)
Quarter: 2006Q3

REPORT INFORMATION
  Report Type: 
  Country: None (occurrence: None)
  Receive Date: 20060706
  Receipt Date: 20050513
  Transmission Date: 20061208
  Serious: Yes (Hospitalization)
  Sender: FDA-Public Use
  Company Number: 1822

PATIENT
  Age: 23 Year
  Sex: Male

DRUGS (7)
  1. AVINZA [Suspect]
     Indication: BACK PAIN
     Dosage: 30 MG QD PO
     Route: 048
     Dates: end: 20050505
  2. AVINZA [Suspect]
     Indication: BACK PAIN
     Dosage: 60 MG QD PO
     Route: 048
     Dates: start: 20050506, end: 20050501
  3. AVINZA [Suspect]
     Indication: BACK PAIN
     Dosage: 30 MG BID PO
     Route: 048
     Dates: start: 20050501
  4. ALPRAZOLAM [Concomitant]
  5. AMITRIPTYLINE HCL [Concomitant]
  6. ESCITALOPRAM [Concomitant]
  7. TRAMADOL HCL [Concomitant]

REACTIONS (4)
  - AMNESIA [None]
  - BLINDNESS [None]
  - COMA [None]
  - DEAFNESS [None]
